FAERS Safety Report 25757479 (Version 3)
Quarter: 2025Q4

REPORT INFORMATION
  Report Type: Spontaneous
  Country: US (occurrence: US)
  Receive Date: 20250903
  Receipt Date: 20251031
  Transmission Date: 20260118
  Serious: Yes (Other)
  Sender: PFIZER
  Company Number: US-PFIZER INC-202500174661

PATIENT
  Age: 60 Year
  Sex: Male

DRUGS (6)
  1. PRISTIQ EXTENDED-RELEASE [Suspect]
     Active Substance: DESVENLAFAXINE SUCCINATE
     Indication: Depression
     Dosage: 25 MG
     Dates: start: 20250716, end: 20250818
  2. CELEXA [Concomitant]
     Active Substance: CITALOPRAM HYDROBROMIDE
     Dosage: 20 MG
     Dates: end: 20250716
  3. CELEXA [Concomitant]
     Active Substance: CITALOPRAM HYDROBROMIDE
     Dosage: 10 MG
     Dates: start: 2025
  4. CELEXA [Concomitant]
     Active Substance: CITALOPRAM HYDROBROMIDE
     Dosage: 20 MG
     Dates: start: 202509
  5. KLONOPIN [Concomitant]
     Active Substance: CLONAZEPAM
     Indication: Anxiety
     Dosage: 1 MG, AS NEEDED
  6. KLONOPIN [Concomitant]
     Active Substance: CLONAZEPAM
     Dosage: 2 MG, DAILY
     Dates: start: 202509

REACTIONS (11)
  - Depersonalisation/derealisation disorder [Not Recovered/Not Resolved]
  - Flat affect [Unknown]
  - Lethargy [Unknown]
  - Disturbance in attention [Unknown]
  - Apathy [Unknown]
  - Fear [Unknown]
  - Delusional perception [Unknown]
  - Feeling abnormal [Unknown]
  - Memory impairment [Unknown]
  - Terminal insomnia [Unknown]
  - Emotional disorder [Unknown]

NARRATIVE: CASE EVENT DATE: 20250101
